FAERS Safety Report 21579689 (Version 1)
Quarter: 2022Q4

REPORT INFORMATION
  Report Type: Spontaneous
  Country: US (occurrence: None)
  Receive Date: 20221110
  Receipt Date: 20221110
  Transmission Date: 20230113
  Serious: Yes (Disabling)
  Sender: FDA-Public Use
  Company Number: None

PATIENT
  Age: 79 Year
  Sex: Female
  Weight: 62.55 kg

DRUGS (2)
  1. LACOSAMIDE [Suspect]
     Active Substance: LACOSAMIDE
     Indication: Clonic convulsion
     Dosage: OTHER QUANTITY : 60 TABLET(S)?FREQUENCY : TWICE A DAY?
     Route: 048
  2. BOOST [Concomitant]

REACTIONS (3)
  - Dyspnoea [None]
  - Balance disorder [None]
  - Loss of personal independence in daily activities [None]

NARRATIVE: CASE EVENT DATE: 20221003
